FAERS Safety Report 7178354-5 (Version None)
Quarter: 2010Q4

REPORT INFORMATION
  Report Type: 
  Country: None (occurrence: None)
  Receive Date: 20101220
  Receipt Date: 20101210
  Transmission Date: 20110411
  Serious: Yes (Death)
  Sender: FDA-Public Use
  Company Number: GR-PFIZER INC-2010165674

PATIENT
  Age: 66 Year
  Sex: Male
  Weight: 75 kg

DRUGS (10)
  1. PIPERACILLIN AND TAZOBACTAM [Suspect]
     Indication: ABDOMINAL INFECTION
     Dosage: 4.5 G, 3X/DAY
     Route: 042
     Dates: start: 20100609, end: 20100614
  2. PIPERACILLIN AND TAZOBACTAM [Suspect]
     Dosage: 4.5 G, 4X/DAY
     Route: 042
     Dates: start: 20100703, end: 20100705
  3. METRONIDAZOLE [Suspect]
     Dosage: 500 MG, 3X/DAY
     Route: 042
     Dates: start: 20100615, end: 20100617
  4. METRONIDAZOLE [Suspect]
     Dosage: 500 MG, 3X/DAY
     Route: 042
     Dates: start: 20100622, end: 20100629
  5. ZURCAZOL [Suspect]
     Dosage: 40 MG, 1X/DAY
     Route: 042
     Dates: end: 20100609
  6. CLAVULANIC ACID/TICARCILLIN DISODIUM [Suspect]
     Indication: ABDOMINAL INFECTION
     Dosage: 5.2 G, 4X/DAY
     Route: 042
     Dates: start: 20100615, end: 20100618
  7. CLAVULANIC ACID/TICARCILLIN DISODIUM [Suspect]
     Dosage: 5.2 G, 3X/DAY
     Route: 042
     Dates: start: 20100619, end: 20100625
  8. CLAVULANIC ACID/TICARCILLIN DISODIUM [Suspect]
     Dosage: 5.2 G, 4X/DAY
     Route: 042
     Dates: start: 20100626, end: 20100702
  9. PANCORAN [Suspect]
     Dosage: 10 MG, 1X/DAY
     Route: 062
  10. INNOHEP [Suspect]
     Dosage: 0.35 MG, 1X/DAY
     Route: 058

REACTIONS (1)
  - DEATH [None]
